FAERS Safety Report 20713083 (Version 1)
Quarter: 2022Q2

REPORT INFORMATION
  Report Type: Spontaneous
  Country: US (occurrence: US)
  Receive Date: 20220415
  Receipt Date: 20220415
  Transmission Date: 20220721
  Serious: Yes (Other)
  Sender: FDA-Public Use
  Company Number: US-SA-SAC20220412001178

PATIENT
  Age: 53 Year

DRUGS (1)
  1. ZANTAC [Suspect]
     Active Substance: RANITIDINE HYDROCHLORIDE
     Indication: Dyspepsia
     Dosage: UNK, QD
     Dates: start: 200305, end: 201010

REACTIONS (3)
  - Prostate cancer stage II [Not Recovered/Not Resolved]
  - Disease progression [Not Recovered/Not Resolved]
  - Oesophageal carcinoma [Unknown]

NARRATIVE: CASE EVENT DATE: 20100301
